FAERS Safety Report 9682598 (Version 1)
Quarter: 2013Q4

REPORT INFORMATION
  Report Type: Spontaneous
  Country: DE (occurrence: DE)
  Receive Date: 20131112
  Receipt Date: 20131112
  Transmission Date: 20140711
  Serious: Yes (Hospitalization, Other)
  Sender: FDA-Public Use
  Company Number: DE-UCBSA-102668

PATIENT
  Age: 24 Hour
  Sex: Male
  Weight: 2.86 kg

DRUGS (4)
  1. LEVETIRACETAM [Suspect]
     Indication: EPILEPSY
     Dosage: 2250 MG/D(1000-250-1000) MG/DAY
     Route: 064
     Dates: start: 2008
  2. LAMOTRIGIN [Suspect]
     Indication: EPILEPSY
     Dosage: 400 MG (200-0-200) MG
     Route: 064
     Dates: start: 2008
  3. SUFENTANIL [Concomitant]
     Indication: PAIN
     Route: 064
     Dates: start: 20081020, end: 20081020
  4. ROPIVACAIN [Concomitant]
     Indication: PAIN
     Route: 064
     Dates: start: 200810

REACTIONS (6)
  - Patent ductus arteriosus [Recovered/Resolved]
  - Agitation neonatal [Recovered/Resolved]
  - Portal vein thrombosis [Recovered/Resolved]
  - Apnoea neonatal [Recovered/Resolved]
  - Feeding disorder neonatal [Recovered/Resolved]
  - Foetal exposure during pregnancy [Recovered/Resolved]
